FAERS Safety Report 20037403 (Version 1)
Quarter: 2021Q4

REPORT INFORMATION
  Report Type: Spontaneous
  Country: US (occurrence: US)
  Receive Date: 20211105
  Receipt Date: 20211105
  Transmission Date: 20220303
  Serious: No
  Sender: FDA-Public Use
  Company Number: US-GLAXOSMITHKLINE-US2021227311

PATIENT
  Sex: Female

DRUGS (1)
  1. TRELEGY ELLIPTA [Suspect]
     Active Substance: FLUTICASONE FUROATE\UMECLIDINIUM BROMIDE\VILANTEROL TRIFENATATE
     Indication: Chronic obstructive pulmonary disease
     Dosage: UNK(100/62.5/25MCG INH 30)

REACTIONS (4)
  - Influenza [Recovering/Resolving]
  - Dysphagia [Recovering/Resolving]
  - Abdominal discomfort [Recovering/Resolving]
  - Product dose omission issue [Unknown]
